FAERS Safety Report 12273438 (Version 1)
Quarter: 2016Q2

REPORT INFORMATION
  Report Type: Spontaneous
  Country: US (occurrence: US)
  Receive Date: 20160415
  Receipt Date: 20160415
  Transmission Date: 20160815
  Serious: No
  Sender: FDA-Public Use
  Company Number: US-BIOCRYST PHARMACEUTICALS, INC.-2016BCR00123

PATIENT

DRUGS (1)
  1. RAPIVAB [Suspect]
     Active Substance: PERAMIVIR
     Dosage: UNK

REACTIONS (2)
  - Rash erythematous [Unknown]
  - Off label use [Unknown]
